FAERS Safety Report 17550399 (Version 1)
Quarter: 2020Q1

REPORT INFORMATION
  Report Type: Spontaneous
  Country: US (occurrence: US)
  Receive Date: 20200317
  Receipt Date: 20200317
  Transmission Date: 20200409
  Serious: No
  Sender: FDA-Public Use
  Company Number: US-EISAI MEDICAL RESEARCH-EC-2020-071398

PATIENT
  Age: 28 Year
  Sex: Female

DRUGS (1)
  1. HALAVEN [Suspect]
     Active Substance: ERIBULIN MESYLATE
     Indication: BREAST CANCER METASTATIC
     Dosage: DOSE UNKNOWN
     Route: 042
     Dates: start: 2019, end: 202002

REACTIONS (3)
  - Hot flush [Unknown]
  - Neuropathy peripheral [Unknown]
  - Nausea [Recovering/Resolving]
